FAERS Safety Report 6493249-8 (Version None)
Quarter: 2009Q4

REPORT INFORMATION
  Report Type: 
  Country: None (occurrence: None)
  Receive Date: 20091214
  Receipt Date: 20091204
  Transmission Date: 20100525
  Serious: Yes (Hospitalization)
  Sender: FDA-Public Use
  Company Number: B0601280A

PATIENT
  Age: 64 Year
  Sex: Female

DRUGS (7)
  1. ALLI [Suspect]
     Dosage: 60MG SEE DOSAGE TEXT
     Route: 065
     Dates: start: 20090901, end: 20091001
  2. POTASSIUM IODIDE [Concomitant]
     Indication: DRUG USE FOR UNKNOWN INDICATION
     Route: 065
  3. ENALAPRIL MALEATE AND HYDROCHLOROTHIAZIDE [Concomitant]
     Indication: DRUG USE FOR UNKNOWN INDICATION
     Route: 065
  4. LORATADINE [Concomitant]
     Indication: DRUG USE FOR UNKNOWN INDICATION
     Route: 065
  5. TRIAMTEREN [Concomitant]
     Indication: DRUG USE FOR UNKNOWN INDICATION
     Route: 065
  6. NORMALIP PRO [Concomitant]
     Indication: DRUG USE FOR UNKNOWN INDICATION
     Route: 065
  7. MERICOMB [Concomitant]
     Indication: DRUG USE FOR UNKNOWN INDICATION
     Route: 065

REACTIONS (5)
  - CARDIAC DISORDER [None]
  - DIARRHOEA [None]
  - DIZZINESS [None]
  - NAUSEA [None]
  - TACHYCARDIA [None]
